FAERS Safety Report 7010944-2 (Version None)
Quarter: 2010Q3

REPORT INFORMATION
  Report Type: 
  Country: None (occurrence: None)
  Receive Date: 20100922
  Receipt Date: 20100922
  Transmission Date: 20110219
  Serious: Yes (Other)
  Sender: FDA-Public Use
  Company Number: None

PATIENT
  Age: 47 Year
  Sex: Female
  Weight: 69.4003 kg

DRUGS (3)
  1. CLONAZEPAM [Suspect]
     Indication: CONVULSION
     Dosage: 1 TABLET 3 X DAY OR
     Route: 048
     Dates: start: 20100501
  2. CLONAZEPAM [Suspect]
     Indication: MULTIPLE SCLEROSIS
     Dosage: 1 TABLET 3 X DAY OR
     Route: 048
     Dates: start: 20100501
  3. CLONAZEPAM [Suspect]
     Indication: PANIC ATTACK
     Dosage: 1 TABLET 3 X DAY OR
     Route: 048
     Dates: start: 20100501

REACTIONS (7)
  - DYSGEUSIA [None]
  - EYE IRRITATION [None]
  - PRODUCT SIZE ISSUE [None]
  - PRODUCT SUBSTITUTION ISSUE [None]
  - RASH [None]
  - TABLET ISSUE [None]
  - THROAT IRRITATION [None]
